FAERS Safety Report 9519212 (Version 2)
Quarter: 2014Q1

REPORT INFORMATION
  Report Type: Spontaneous
  Country: US (occurrence: None)
  Receive Date: 20130305
  Receipt Date: 20140306
  Transmission Date: 20141002
  Serious: Yes (Other)
  Sender: FDA-Public Use
  Company Number: 163-21880-12100525

PATIENT
  Age: 57 Year
  Sex: Male

DRUGS (17)
  1. REVLIMID [Suspect]
     Indication: PLASMA CELL MYELOMA
     Route: 048
     Dates: start: 201005
  2. CYMBALTA (DULOXETINE HYDROCHLORIDE) [Concomitant]
  3. VIAGRA (SILDENAFIL CITRATE) [Concomitant]
  4. CLINDAMYCIN HCL [Concomitant]
  5. ASPIRIN EC (ACETYLSALICYLIC ACID) [Concomitant]
  6. VITAMIN B6 (PYRIDOXINE HYDROCHLORIDE) [Concomitant]
  7. VITAMIN B12 (CYANOCOBALAMIN) [Concomitant]
  8. MULTIVITAMINS [Concomitant]
  9. TESTIM (TESTOSTERONE) [Concomitant]
  10. LACTAID (TILACTASE) [Concomitant]
  11. PANTOPRAZOLE [Concomitant]
  12. CODEINE SULFATE [Concomitant]
  13. ATROVENT HFA (IPRATROPIUM BROMIDE) [Concomitant]
  14. COLCRYS (COLCHICINE) [Concomitant]
  15. OXYCODONE HCL [Concomitant]
  16. PREDNISONE [Concomitant]
  17. ACYCLOVIR (ACICLOVIR) (ACICLOVIR) [Concomitant]

REACTIONS (3)
  - Diarrhoea [None]
  - Abdominal distension [None]
  - Drug dose omission [None]
